FAERS Safety Report 6944716-1 (Version None)
Quarter: 2010Q3

REPORT INFORMATION
  Report Type: 
  Country: None (occurrence: None)
  Receive Date: 20100827
  Receipt Date: 20100823
  Transmission Date: 20110219
  Serious: Yes (Other)
  Sender: FDA-Public Use
  Company Number: US-RB-014495-10

PATIENT
  Age: 51 Year
  Sex: Male

DRUGS (1)
  1. SUBOXONE [Suspect]
     Indication: DRUG DEPENDENCE
     Route: 060
     Dates: start: 20050101

REACTIONS (3)
  - DRUG WITHDRAWAL SYNDROME [None]
  - INSOMNIA [None]
  - SUICIDAL IDEATION [None]
